FAERS Safety Report 7409852-4 (Version None)
Quarter: 2011Q2

REPORT INFORMATION
  Report Type: 
  Country: None (occurrence: None)
  Receive Date: 20110412
  Receipt Date: 20101221
  Transmission Date: 20111010
  Serious: Yes (Hospitalization, Other)
  Sender: FDA-Public Use
  Company Number: US-BAYER-201025805NA

PATIENT
  Age: 39 Year
  Sex: Female
  Weight: 89.342 kg

DRUGS (6)
  1. IBUPROFEN [Concomitant]
     Dosage: 800 MG, UNK
     Dates: start: 20080501
  2. THYROID TAB [Concomitant]
     Dosage: 60 MG, QD
  3. NAPROXEN [Concomitant]
     Dosage: UNK
     Dates: start: 20030601
  4. ZOLPIDEM [Concomitant]
  5. YAZ [Suspect]
     Indication: CONTRACEPTION
     Dosage: UNK UNK, UNK
     Route: 048
     Dates: start: 20080320, end: 20080602
  6. DARVOCET-N 50 [Concomitant]

REACTIONS (3)
  - PULMONARY EMBOLISM [None]
  - CHEST PAIN [None]
  - DEEP VEIN THROMBOSIS [None]
